FAERS Safety Report 14995707 (Version 1)
Quarter: 2018Q2

REPORT INFORMATION
  Report Type: Report from Study
  Country: KR (occurrence: KR)
  Receive Date: 20180611
  Receipt Date: 20180611
  Transmission Date: 20180711
  Serious: Yes (Death, Other)
  Sender: FDA-Public Use
  Company Number: KR-PFIZER INC-2018233531

PATIENT

DRUGS (4)
  1. CALCIUM FOLINATE [Suspect]
     Active Substance: LEUCOVORIN CALCIUM
     Indication: PANCREATIC CARCINOMA
     Dosage: 400 MG/M2, CYCLIC, ON DAY 1 (REPEATED EVERY 2 WEEKS)
     Route: 042
  2. FLUOROURACIL. [Suspect]
     Active Substance: FLUOROURACIL
     Indication: PANCREATIC CARCINOMA
     Dosage: 2000 MG/M2, CYCLIC, ON DAY 1-2 (INFUSION OVER 46 H), REPATED EVERY 2 WEEKS
     Route: 042
  3. IRINOTECAN HCL [Suspect]
     Active Substance: IRINOTECAN HYDROCHLORIDE
     Indication: PANCREATIC CARCINOMA
     Dosage: 135 MG/M2, CYCLIC, ON DAY 1 (REPEATED EVERY 2 WEEKS)
     Route: 042
  4. OXALIPLATIN. [Suspect]
     Active Substance: OXALIPLATIN
     Indication: PANCREATIC CARCINOMA
     Dosage: 65 MG/M2, CYCLIC, ON DAY 1 (REPEATED EVERY 2 WEEKS)
     Route: 042

REACTIONS (2)
  - Biliary tract infection [Not Recovered/Not Resolved]
  - Septic shock [Fatal]
